FAERS Safety Report 12076533 (Version 2)
Quarter: 2016Q1

REPORT INFORMATION
  Report Type: Spontaneous
  Country: JP (occurrence: JP)
  Receive Date: 20160215
  Receipt Date: 20160224
  Transmission Date: 20160526
  Serious: Yes (Hospitalization)
  Sender: FDA-Public Use
  Company Number: PHHY2015JP123134

PATIENT
  Sex: Male

DRUGS (4)
  1. ALESION [Concomitant]
     Active Substance: EPINASTINE HYDROCHLORIDE
     Indication: PRODUCT USED FOR UNKNOWN INDICATION
     Dosage: 1 DF, QD
     Route: 065
     Dates: start: 20150815
  2. RIVASTACH [Suspect]
     Active Substance: RIVASTIGMINE
     Dosage: 6.9 MG/24 HOURS, 13.5 MG RIVASTIGMINE BASE (PATCH 7.5 (CM2))
     Route: 062
     Dates: start: 20150719, end: 20151111
  3. RIVASTACH [Suspect]
     Active Substance: RIVASTIGMINE
     Indication: DEMENTIA ALZHEIMER^S TYPE
     Dosage: 1.9 MG/24 HOURS, 4.5 MG RIVASTIGMINE BASE, PATCH 2.5 (CM2)
     Route: 062
     Dates: start: 20150524, end: 2015
  4. RIVASTACH [Suspect]
     Active Substance: RIVASTIGMINE
     Dosage: 4.6 MG/24 HOURS, 9 MG RIVASTIGMINE BASE (PATCH 5 (CM2))
     Route: 062
     Dates: start: 20151112

REACTIONS (4)
  - Eosinophil count increased [Recovering/Resolving]
  - Pruritus [Recovering/Resolving]
  - Pigmentation disorder [Unknown]
  - Pneumonia [Recovering/Resolving]

NARRATIVE: CASE EVENT DATE: 2015
